FAERS Safety Report 15745456 (Version 4)
Quarter: 2022Q2

REPORT INFORMATION
  Report Type: Report from Study
  Country: US (occurrence: US)
  Receive Date: 20181220
  Receipt Date: 20220408
  Transmission Date: 20220721
  Serious: Yes (Life-Threatening, Hospitalization, Other)
  Sender: FDA-Public Use
  Company Number: US-REGENERON PHARMACEUTICALS, INC.-2017-16437

PATIENT
  Sex: Male

DRUGS (6)
  1. CEMIPLIMAB [Suspect]
     Active Substance: CEMIPLIMAB
     Indication: B-cell lymphoma
     Dosage: 3 MG/KG, Q2W
     Route: 042
     Dates: start: 20170426, end: 20170510
  2. COREG [Concomitant]
     Active Substance: CARVEDILOL
     Indication: Hypertension
     Dosage: 3.125 MG MILLIGRAM(S), QD
     Route: 048
     Dates: start: 20140328, end: 20170601
  3. LISINOPRIL [Concomitant]
     Active Substance: LISINOPRIL
     Indication: Hypertension
     Dosage: 2.5 MG MILLIGRAM(S), BID
     Route: 048
     Dates: start: 20140307, end: 20170525
  4. ALLOPURINOL [Concomitant]
     Active Substance: ALLOPURINOL
     Indication: Hyperuricaemia
     Dosage: 300 MG, QD
     Route: 048
     Dates: start: 20170510
  5. LORAZEPAM [Concomitant]
     Active Substance: LORAZEPAM
     Indication: Insomnia
     Dosage: 1 MG, AS NECESSARY
     Route: 048
     Dates: start: 20170515
  6. TRIAMCINOLONE [Concomitant]
     Active Substance: TRIAMCINOLONE
     Indication: Product used for unknown indication
     Dosage: 1 APPLICATION, BID
     Route: 061
     Dates: start: 20151219

REACTIONS (9)
  - Myasthenia gravis [Recovered/Resolved]
  - Myositis [Recovered/Resolved]
  - Sepsis [Recovered/Resolved]
  - Myocarditis [Recovered/Resolved]
  - Hepatitis [Recovered/Resolved]
  - Pneumonia [Recovered/Resolved]
  - Aspartate aminotransferase increased [Recovered/Resolved]
  - Rash [Recovered/Resolved]
  - Blood creatine phosphokinase increased [Recovered/Resolved]

NARRATIVE: CASE EVENT DATE: 20170515
